FAERS Safety Report 5144201-6 (Version None)
Quarter: 2006Q4

REPORT INFORMATION
  Report Type: 
  Country: None (occurrence: None)
  Receive Date: 20061102
  Receipt Date: 20061102
  Transmission Date: 20070319
  Serious: Yes (Hospitalization)
  Sender: FDA-Public Use
  Company Number: None

PATIENT
  Age: 79 Year
  Sex: Female
  Weight: 58.514 kg

DRUGS (1)
  1. OXANDROLONE [Suspect]
     Indication: WEIGHT INCREASED
     Dosage: 10 MG   BID   PO
     Route: 048
     Dates: start: 20060809, end: 20061019

REACTIONS (5)
  - CELLULITIS [None]
  - ERYTHEMA [None]
  - OEDEMA PERIPHERAL [None]
  - REFUSAL OF TREATMENT BY PATIENT [None]
  - REFUSAL OF TREATMENT BY RELATIVE [None]
